FAERS Safety Report 13706261 (Version 1)
Quarter: 2017Q2

REPORT INFORMATION
  Report Type: Spontaneous
  Country: FR (occurrence: FR)
  Receive Date: 20170630
  Receipt Date: 20170630
  Transmission Date: 20170830
  Serious: Yes (Hospitalization)
  Sender: FDA-Public Use
  Company Number: FR-PFIZER INC-2017280226

PATIENT
  Age: 21 Month
  Sex: Female
  Weight: 12 kg

DRUGS (1)
  1. ADVIL [Suspect]
     Active Substance: IBUPROFEN
     Indication: PAIN
     Dosage: 1 DF, 2X/DAY
     Route: 048
     Dates: start: 20170609, end: 20170610

REACTIONS (3)
  - Lymphadenopathy [Recovered/Resolved]
  - Condition aggravated [Recovered/Resolved]
  - Pharyngeal abscess [Recovered/Resolved]

NARRATIVE: CASE EVENT DATE: 20170611
